FAERS Safety Report 22037069 (Version 1)
Quarter: 2023Q1

REPORT INFORMATION
  Report Type: Spontaneous
  Country: US (occurrence: US)
  Receive Date: 20230226
  Receipt Date: 20230226
  Transmission Date: 20230418
  Serious: No
  Sender: FDA-Public Use
  Company Number: US-ELI_LILLY_AND_COMPANY-US202302012018

PATIENT
  Age: 69 Year
  Sex: Male

DRUGS (2)
  1. MOUNJARO [Suspect]
     Active Substance: TIRZEPATIDE
     Indication: Type 2 diabetes mellitus
     Dosage: 12.5 MG, UNKNOWN
     Route: 058
     Dates: start: 20230127, end: 20230127
  2. BYETTA [Concomitant]
     Active Substance: EXENATIDE
     Indication: Type 2 diabetes mellitus

REACTIONS (8)
  - Headache [Recovered/Resolved]
  - Inappropriate schedule of product administration [Unknown]
  - Constipation [Recovered/Resolved]
  - Nausea [Recovered/Resolved]
  - Fatigue [Recovered/Resolved]
  - Abdominal pain upper [Recovered/Resolved]
  - Decreased appetite [Recovered/Resolved]
  - Abdominal discomfort [Recovered/Resolved]

NARRATIVE: CASE EVENT DATE: 20230127
